FAERS Safety Report 18362842 (Version 1)
Quarter: 2020Q4

REPORT INFORMATION
  Report Type: Spontaneous
  Country: GB (occurrence: GB)
  Receive Date: 20201008
  Receipt Date: 20201008
  Transmission Date: 20210114
  Serious: Yes (Other)
  Sender: FDA-Public Use
  Company Number: NVSC2020GB264260

PATIENT
  Sex: Female

DRUGS (2)
  1. PRAVASTATIN. [Concomitant]
     Active Substance: PRAVASTATIN
     Indication: PRODUCT USED FOR UNKNOWN INDICATION
     Route: 065
  2. CLARITHROMYCIN. [Suspect]
     Active Substance: CLARITHROMYCIN
     Indication: ABSCESS LIMB
     Dosage: 1 DF, BID
     Route: 065

REACTIONS (9)
  - Feeling of despair [Unknown]
  - Depression [Unknown]
  - Dysgeusia [Unknown]
  - Nightmare [Unknown]
  - Hallucination, visual [Unknown]
  - Condition aggravated [Unknown]
  - Post-traumatic stress disorder [Unknown]
  - Fear [Unknown]
  - Parosmia [Unknown]
